FAERS Safety Report 7348444-2 (Version None)
Quarter: 2011Q1

REPORT INFORMATION
  Report Type: 
  Country: None (occurrence: None)
  Receive Date: 20110311
  Receipt Date: 20110211
  Transmission Date: 20110831
  Serious: No
  Sender: FDA-Public Use
  Company Number: US-B.I. PHARMACEUTICALS,INC./RIDGEFIELD-2011-BP-00391BP

PATIENT
  Sex: Male

DRUGS (8)
  1. LOVAZA [Concomitant]
  2. CPAP [Concomitant]
     Indication: SLEEP APNOEA SYNDROME
  3. C-VITAMIN [Concomitant]
  4. LEVOTHYROXINE [Concomitant]
  5. SIMVASTATIN [Concomitant]
     Dosage: 20 MG
  6. MIRAPEX [Suspect]
     Indication: RESTLESS LEGS SYNDROME
     Dosage: 2 MG
     Route: 048
  7. GLIMEPIRIDE [Concomitant]
     Route: 048
  8. MULTI-VITAMIN [Concomitant]

REACTIONS (7)
  - CATARACT [None]
  - DRUG INEFFECTIVE [None]
  - FEELING OF RELAXATION [None]
  - RESTLESS LEGS SYNDROME [None]
  - FEELING JITTERY [None]
  - ANXIETY [None]
  - CARPAL TUNNEL SYNDROME [None]
